FAERS Safety Report 4500327-9 (Version None)
Quarter: 2004Q4

REPORT INFORMATION
  Report Type: 
  Country: None (occurrence: None)
  Receive Date: 20041112
  Receipt Date: 20041018
  Transmission Date: 20050328
  Serious: Yes (Hospitalization, Other)
  Sender: FDA-Public Use
  Company Number: US-MERCK-0410USA02747

PATIENT
  Age: 21 Year
  Sex: Male

DRUGS (9)
  1. VIOXX [Suspect]
     Indication: PAIN
     Route: 048
     Dates: start: 20040510
  2. VIOXX [Suspect]
     Route: 048
     Dates: start: 20040801
  3. LORTAB [Concomitant]
     Indication: PAIN
     Route: 048
     Dates: start: 20040527
  4. MEDROL [Concomitant]
     Indication: PAIN
     Route: 048
     Dates: start: 20040527, end: 20040603
  5. MEDROL [Concomitant]
     Route: 048
     Dates: start: 20040709
  6. NORFLEX [Concomitant]
     Indication: MUSCLE STRAIN
     Route: 048
     Dates: start: 20040527, end: 20040607
  7. CELEBREX [Concomitant]
     Route: 065
     Dates: start: 20040614, end: 20040701
  8. ULTRAM [Concomitant]
     Route: 048
     Dates: start: 20040728, end: 20040802
  9. TORADOL [Concomitant]
     Route: 030
     Dates: start: 20040802

REACTIONS (4)
  - ABDOMINAL PAIN UPPER [None]
  - GASTRIC HAEMORRHAGE [None]
  - GASTROINTESTINAL HAEMORRHAGE [None]
  - INTESTINAL HAEMORRHAGE [None]
